FAERS Safety Report 18088401 (Version 2)
Quarter: 2020Q4

REPORT INFORMATION
  Report Type: Report from Study
  Country: GB (occurrence: CN)
  Receive Date: 20200729
  Receipt Date: 20201203
  Transmission Date: 20210113
  Serious: Yes (Hospitalization, Other)
  Sender: FDA-Public Use
  Company Number: CN-ASTELLAS-2018US036409

PATIENT
  Sex: Female

DRUGS (1)
  1. ERLOTINIB [Suspect]
     Active Substance: ERLOTINIB
     Indication: NON-SMALL CELL LUNG CANCER
     Route: 048
     Dates: start: 20150912

REACTIONS (5)
  - Malignant neoplasm progression [Unknown]
  - Ocular discomfort [Unknown]
  - Rash [Unknown]
  - Diarrhoea [Unknown]
  - Nasopharyngitis [Unknown]
